FAERS Safety Report 9383519 (Version 1)
Quarter: 2013Q3

REPORT INFORMATION
  Report Type: Spontaneous
  Country: US (occurrence: US)
  Receive Date: 20130704
  Receipt Date: 20130704
  Transmission Date: 20140515
  Serious: Yes (Death, Hospitalization, Other)
  Sender: FDA-Public Use
  Company Number: US-ELI_LILLY_AND_COMPANY-US_001255533

PATIENT
  Age: 45 Year
  Sex: Female

DRUGS (25)
  1. HUMULIN [Suspect]
     Indication: DIABETES MELLITUS
     Dosage: UNK, AS NEEDED
     Route: 058
  2. HUMULIN [Suspect]
     Indication: DIABETES MELLITUS
     Dosage: 10 U, EACH EVENING
     Route: 058
  3. NEURONTIN [Concomitant]
     Dosage: 1000 MG, 3/D
     Route: 048
  4. TEGRETOL [Concomitant]
     Dosage: 200 MG, DAILY (1/D)
     Route: 048
  5. ATIVAN [Concomitant]
     Dosage: UNK, UNKNOWN
     Route: 048
  6. RISPERIDAL [Concomitant]
     Dosage: 0.05 MG, 4/D
     Route: 048
  7. PEPCID [Concomitant]
     Dosage: 20 MG, 2/D
     Route: 058
  8. CLONIDINE [Concomitant]
     Dosage: 0.1 MG, EACH EVENING
  9. ISORDIL [Concomitant]
     Dosage: 60 MG, DAILY (1/D)
  10. SYNTHROID [Concomitant]
     Dosage: 0.175 MG, DAILY (1/D)
  11. VIOXX [Concomitant]
     Dosage: 2.5 MG, DAILY (1/D)
  12. ZOLOFT [Concomitant]
     Dosage: 50 MG, DAILY (1/D)
  13. VASOTEC [Concomitant]
     Dosage: 20 MG, 2/D
  14. MIACALCIN [Concomitant]
     Dosage: 1 UNK, DAILY (1/D)
     Route: 045
  15. DURAGESIC [Concomitant]
     Dosage: UNK, UNKNOWN
     Route: 062
  16. PERCOCET [Concomitant]
     Dosage: UNK, 4/D
  17. DIAZEPAM [Concomitant]
     Dosage: UNK, AS NEEDED
  18. HYDROXYZINE [Concomitant]
     Dosage: 25 MG, AS NEEDED
  19. ZOFRAN [Concomitant]
     Dosage: 8 MG, UNKNOWN
  20. MILK OF MAGNESIA WITH CASCARA [Concomitant]
     Indication: GASTROINTESTINAL MOTILITY DISORDER
     Dosage: UNK, UNKNOWN
  21. PROPULSID [Concomitant]
     Dosage: UNK, UNKNOWN
  22. SURFAX [Concomitant]
     Dosage: 240 MG, 4/D
  23. VANCERIL [Concomitant]
     Indication: DYSPNOEA
     Dosage: 4 UNK, 2/D
  24. PATANOL [Concomitant]
     Dosage: 1 UNK, 3/D
     Route: 047
  25. CLINDAMYCIN [Concomitant]
     Indication: SKIN ULCER
     Dosage: UNK, UNKNOWN
     Route: 061

REACTIONS (8)
  - Cardiac failure congestive [Fatal]
  - Renal disorder [Fatal]
  - Convulsion [Unknown]
  - Blood glucose decreased [Unknown]
  - Hypotension [Unknown]
  - Blood glucose increased [Unknown]
  - Poor peripheral circulation [Unknown]
  - Bone disorder [Unknown]
